FAERS Safety Report 10044326 (Version 2)
Quarter: 2014Q2

REPORT INFORMATION
  Report Type: Spontaneous
  Country: US (occurrence: US)
  Receive Date: 20140328
  Receipt Date: 20140411
  Transmission Date: 20141212
  Serious: Yes (Other)
  Sender: FDA-Public Use
  Company Number: US-PFIZER INC-2014084511

PATIENT
  Age: 56 Year
  Sex: Female
  Weight: 70.3 kg

DRUGS (15)
  1. SUTENT [Suspect]
     Dosage: UNK
     Dates: start: 201212, end: 20140124
  2. TRAZODONE [Concomitant]
     Dosage: UNK
  3. LANTUS [Concomitant]
     Indication: DIABETES MELLITUS
     Dosage: UNK
  4. OXYCODONE [Concomitant]
     Dosage: UNK
  5. METHADONE [Concomitant]
     Dosage: UNK
  6. LOPRESSOR [Concomitant]
     Dosage: UNK
  7. SINGULAIR [Concomitant]
     Dosage: UNK
  8. LORAZEPAM [Concomitant]
     Dosage: UNK
  9. PRILOSEC [Concomitant]
     Dosage: UNK
  10. VASOTEC [Concomitant]
     Dosage: UNK
  11. GLUCOTROL [Concomitant]
     Dosage: UNK
  12. JANUVIA [Concomitant]
     Dosage: UNK
  13. BACLOFEN [Concomitant]
     Dosage: UNK
  14. ZOLOFT [Concomitant]
     Dosage: UNK
  15. CENTRUM [Concomitant]
     Dosage: UNK

REACTIONS (1)
  - Convulsion [Unknown]
